FAERS Safety Report 19778964 (Version 2)
Quarter: 2022Q1

REPORT INFORMATION
  Report Type: Report from Study
  Country: CA (occurrence: CA)
  Receive Date: 20210902
  Receipt Date: 20220225
  Transmission Date: 20220424
  Serious: Yes (Other)
  Sender: FDA-Public Use
  Company Number: CA-BRISTOL-MYERS SQUIBB COMPANY-BMS-2021-064046

PATIENT
  Age: 82 Year
  Sex: Female

DRUGS (1)
  1. ABATACEPT [Suspect]
     Active Substance: ABATACEPT
     Indication: Rheumatoid arthritis
     Dosage: 750 MILLIGRAM, Q4WK
     Route: 042
     Dates: start: 20090608

REACTIONS (3)
  - Colitis microscopic [Unknown]
  - Hepatic steatosis [Unknown]
  - Diarrhoea [Not Recovered/Not Resolved]
